FAERS Safety Report 15160885 (Version 1)
Quarter: 2018Q3

REPORT INFORMATION
  Report Type: Spontaneous
  Country: DE (occurrence: DE)
  Receive Date: 20180718
  Receipt Date: 20180718
  Transmission Date: 20181010
  Serious: Yes (Hospitalization)
  Sender: FDA-Public Use
  Company Number: PHHY2017DE204319

PATIENT
  Age: 75 Year
  Sex: Female
  Weight: 70 kg

DRUGS (28)
  1. AAS [Concomitant]
     Active Substance: ASPIRIN
     Indication: THROMBOSIS PROPHYLAXIS
     Dosage: 1 OT, QD (100 MG/ML)
     Route: 048
     Dates: start: 20160712
  2. ZOLEDRONIC ACID. [Concomitant]
     Active Substance: ZOLEDRONIC ACID
     Indication: PROPHYLAXIS
     Dosage: 4 MG, QMO
     Route: 041
     Dates: start: 20160517
  3. MILGAMMA [Concomitant]
     Active Substance: VITAMIN B
     Indication: PERIPHERAL SENSORY NEUROPATHY
  4. HYDROXYZINE [Concomitant]
     Active Substance: HYDROXYZINE HYDROCHLORIDE
     Indication: FEAR
     Dosage: 25 MG, QD
     Route: 048
     Dates: start: 201603
  5. MACROGOL [Concomitant]
     Active Substance: POLYETHYLENE GLYCOLS
     Indication: CONSTIPATION
     Dosage: 13.8 G, QD
     Route: 048
     Dates: start: 20160524
  6. MEBEVERINE [Concomitant]
     Active Substance: MEBEVERINE
     Indication: IRRITABLE BOWEL SYNDROME
  7. RESOLOR [Concomitant]
     Active Substance: PRUCALOPRIDE SUCCINATE
     Indication: IRRITABLE BOWEL SYNDROME
     Dosage: 1 OT, QD (1 MG/ML)
     Route: 065
     Dates: start: 20161201
  8. ARANESP [Concomitant]
     Active Substance: DARBEPOETIN ALFA
     Indication: IRRITABLE BOWEL SYNDROME
  9. DEXAMETHASONE. [Suspect]
     Active Substance: DEXAMETHASONE
     Dosage: 4 OT, (PER 28 DAYS)
     Route: 041
     Dates: start: 20160405
  10. REVLIMID [Suspect]
     Active Substance: LENALIDOMIDE
     Indication: PLASMA CELL MYELOMA
     Dosage: 525 MG, PER 28 DAYS (25 MG)
     Route: 048
     Dates: start: 20160405
  11. IBUPROFEN. [Concomitant]
     Active Substance: IBUPROFEN
     Indication: IRRITABLE BOWEL SYNDROME
     Dosage: UNK
     Route: 065
  12. IBUPROFEN. [Concomitant]
     Active Substance: IBUPROFEN
     Indication: SCIATICA
     Dosage: 1 OT, (600 MG/ML)
     Route: 048
  13. ARANESP [Concomitant]
     Active Substance: DARBEPOETIN ALFA
     Indication: ANAEMIA
     Dosage: 500 UG, QD
     Route: 058
     Dates: start: 20160412
  14. MEBEVERINE [Concomitant]
     Active Substance: MEBEVERINE
     Indication: ABDOMINAL PAIN
     Dosage: 3 OT, QD (405 MG/ML)
     Route: 048
     Dates: start: 20160726
  15. DEXAMETHASONE. [Suspect]
     Active Substance: DEXAMETHASONE
     Dosage: 4 OT, PER 28 DAYS (2.8571 MG/ML)
     Route: 048
     Dates: start: 20160405
  16. RESOLOR [Concomitant]
     Active Substance: PRUCALOPRIDE SUCCINATE
     Indication: CONSTIPATION
     Dosage: UNK
     Route: 065
  17. STILNOX [Concomitant]
     Active Substance: ZOLPIDEM TARTRATE
     Indication: SLEEP DISORDER THERAPY
     Dosage: 10 MG, QD
     Route: 048
     Dates: start: 20160503
  18. PANTOPRAZOL [Concomitant]
     Active Substance: PANTOPRAZOLE SODIUM
     Indication: PROPHYLAXIS
     Dosage: 40 MILLIGRAM
     Route: 048
     Dates: start: 20160405
  19. MAGNESIUM [Concomitant]
     Active Substance: MAGNESIUM
     Indication: IRRITABLE BOWEL SYNDROME
     Dosage: 1 OT, (295 MG/ML)
     Route: 048
  20. DARATUMUMAB [Concomitant]
     Active Substance: DARATUMUMAB
     Indication: PLASMA CELL MYELOMA
     Dosage: 1056 MG, UNK
     Route: 041
  21. DEXAMETHASONE. [Suspect]
     Active Substance: DEXAMETHASONE
     Indication: PLASMA CELL MYELOMA
     Dosage: 8 MG, QW (1.1429 MILLIGRAM)
     Route: 065
  22. NOVAMINSULFON [Concomitant]
     Active Substance: METAMIZOLE
     Indication: BONE PAIN
     Dosage: 1500 MG, QD
     Route: 048
     Dates: start: 201603
  23. MONURIL [Concomitant]
     Active Substance: FOSFOMYCIN SODIUM
     Indication: IRRITABLE BOWEL SYNDROME
     Dosage: UNK
     Route: 065
  24. MONURIL [Concomitant]
     Active Substance: FOSFOMYCIN SODIUM
     Indication: URINARY TRACT INFECTION
     Dosage: 3 G, QD
     Route: 048
     Dates: start: 20160906
  25. MILGAMMA [Concomitant]
     Active Substance: VITAMIN B
     Indication: IRRITABLE BOWEL SYNDROME
     Dosage: 1 OT, (40 MG/ML)
     Route: 048
     Dates: start: 20170801
  26. MAGNESIUM [Concomitant]
     Active Substance: MAGNESIUM
     Indication: PERIPHERAL SENSORY NEUROPATHY
  27. CIPROBAY [Concomitant]
     Active Substance: CIPROFLOXACIN
     Indication: INFECTION PROPHYLAXIS
     Dosage: 1000 MG, QD
     Route: 048
     Dates: start: 20160405
  28. ACICLOVIR [Concomitant]
     Active Substance: ACYCLOVIR
     Indication: ANTIVIRAL PROPHYLAXIS
     Dosage: 800 MG, QD
     Route: 048
     Dates: start: 20160517

REACTIONS (3)
  - Stress cardiomyopathy [Recovered/Resolved]
  - Fatigue [Recovered/Resolved]
  - Constipation [Not Recovered/Not Resolved]

NARRATIVE: CASE EVENT DATE: 20161108
